FAERS Safety Report 23610013 (Version 1)
Quarter: 2024Q1

REPORT INFORMATION
  Report Type: Spontaneous
  Country: CH (occurrence: CH)
  Receive Date: 20240308
  Receipt Date: 20240308
  Transmission Date: 20240410
  Serious: Yes (Other)
  Sender: FDA-Public Use
  Company Number: CH-002147023-NVSC2024CH043721

PATIENT
  Sex: Male

DRUGS (4)
  1. ILARIS [Suspect]
     Active Substance: CANAKINUMAB
     Indication: Still^s disease
     Dosage: 300 MG
     Route: 065
  2. CYCLOSPORINE [Suspect]
     Active Substance: CYCLOSPORINE
     Indication: Still^s disease
     Dosage: 150 MG, BID
     Route: 065
  3. PREDNISONE [Suspect]
     Active Substance: PREDNISONE
     Indication: Still^s disease
     Dosage: 60 MG, QD
     Route: 065
     Dates: start: 20240105
  4. PREDNISONE [Suspect]
     Active Substance: PREDNISONE
     Dosage: 50 MG, QD
     Route: 065

REACTIONS (4)
  - Haemophagocytic lymphohistiocytosis [Unknown]
  - Pyrexia [Unknown]
  - Malaise [Unknown]
  - Drug ineffective [Unknown]
